FAERS Safety Report 7593915-7 (Version None)
Quarter: 2011Q3

REPORT INFORMATION
  Report Type: 
  Country: None (occurrence: None)
  Receive Date: 20110706
  Receipt Date: 20110627
  Transmission Date: 20111222
  Serious: Yes (Other)
  Sender: FDA-Public Use
  Company Number: SE-UCBSA-036142

PATIENT
  Sex: Male
  Weight: 50 kg

DRUGS (7)
  1. CLONAZEPAM [Suspect]
  2. VIMPAT [Suspect]
     Dates: start: 20101201, end: 20110503
  3. VIMPAT [Suspect]
     Dates: start: 20110504
  4. FENEMAL [Suspect]
  5. VIMPAT [Suspect]
     Indication: EPILEPSY
     Dates: start: 20100201, end: 20100101
  6. TOPAMAX [Suspect]
  7. VIMPAT [Suspect]
     Dates: start: 20101001, end: 20100101

REACTIONS (1)
  - CONVULSION [None]
